FAERS Safety Report 15345625 (Version 1)
Quarter: 2018Q3

REPORT INFORMATION
  Report Type: Spontaneous
  Country: IT (occurrence: IT)
  Receive Date: 20180904
  Receipt Date: 20180904
  Transmission Date: 20181010
  Serious: Yes (Other)
  Sender: FDA-Public Use
  Company Number: IT-TEVA-2018-IT-951167

PATIENT
  Age: 56 Year
  Sex: Female

DRUGS (1)
  1. AMOXICILLINA RATIOPHARM [Suspect]
     Active Substance: AMOXICILLIN
     Indication: PHARYNGITIS
     Dosage: 1 GRAM DAILY;
     Route: 048
     Dates: start: 20180720, end: 20180725

REACTIONS (6)
  - Chest pain [Recovered/Resolved]
  - Pruritus [Recovered/Resolved]
  - Swelling face [Recovered/Resolved]
  - Peripheral swelling [Recovered/Resolved]
  - Lip swelling [Recovered/Resolved]
  - Dyspnoea [Recovered/Resolved]

NARRATIVE: CASE EVENT DATE: 20180720
